FAERS Safety Report 4935211-X (Version None)
Quarter: 2006Q1

REPORT INFORMATION
  Report Type: 
  Country: None (occurrence: None)
  Receive Date: 20060302
  Receipt Date: 20060214
  Transmission Date: 20060701
  Serious: Yes (Hospitalization)
  Sender: FDA-Public Use
  Company Number: US_0403101181

PATIENT
  Age: 40 Year
  Sex: Female

DRUGS (5)
  1. ILETIN [Suspect]
     Indication: DIABETES MELLITUS
     Dosage: 20 DAILY 1/D
     Dates: start: 19620101, end: 19980101
  2. ILETIN [Suspect]
     Indication: DIABETES MELLITUS
     Dosage: 1 U DAILY 1/D
     Dates: start: 19620101
  3. ILETIN [Suspect]
     Indication: DIABETES MELLITUS
     Dosage: 30 U DAILY 1/D
     Dates: start: 19980101
  4. PRENATAL VITAMINS [Concomitant]
  5. LORATADINE [Concomitant]

REACTIONS (6)
  - ABORTION SPONTANEOUS [None]
  - BLOOD GLUCOSE DECREASED [None]
  - BLOOD GLUCOSE INCREASED [None]
  - DRUG EXPOSURE DURING PREGNANCY [None]
  - INTRA-UTERINE DEATH [None]
  - PREMATURE LABOUR [None]
